FAERS Safety Report 6369207-0 (Version None)
Quarter: 2009Q3

REPORT INFORMATION
  Report Type: 
  Country: None (occurrence: None)
  Receive Date: 20090916
  Receipt Date: 20090908
  Transmission Date: 20100115
  Serious: Yes (Disabling)
  Sender: FDA-Public Use
  Company Number: ADR20302009

PATIENT
  Age: 43 Year
  Sex: Female

DRUGS (3)
  1. RISPERIDONE [Suspect]
     Indication: MANIA
     Dosage: 2MG ORAL
     Route: 048
  2. DIAZEPAM [Concomitant]
  3. ZOPICLONE [Concomitant]

REACTIONS (4)
  - EYE SWELLING [None]
  - OCULAR DISCOMFORT [None]
  - RASH [None]
  - SKIN IRRITATION [None]
